FAERS Safety Report 9817592 (Version 1)
Quarter: 2014Q1

REPORT INFORMATION
  Report Type: Spontaneous
  Country: CA (occurrence: CA)
  Receive Date: 20140115
  Receipt Date: 20140115
  Transmission Date: 20141002
  Serious: Yes (Hospitalization)
  Sender: FDA-Public Use
  Company Number: CA-ASTRAZENECA-2014SE01195

PATIENT
  Age: 53 Year
  Sex: Female
  Weight: 77.1 kg

DRUGS (5)
  1. CRESTOR [Suspect]
     Route: 048
  2. ATACAND [Concomitant]
     Route: 048
  3. ASA [Concomitant]
  4. HYDROCHLOROTHIAZIDE [Concomitant]
  5. METFORMIN [Concomitant]

REACTIONS (4)
  - Chromaturia [Recovered/Resolved]
  - Blood creatine phosphokinase increased [Recovered/Resolved]
  - Blood glucose increased [Recovered/Resolved]
  - Myalgia [Recovered/Resolved]
